FAERS Safety Report 11642996 (Version 4)
Quarter: 2015Q4

REPORT INFORMATION
  Report Type: Report from Study
  Country: IT (occurrence: IT)
  Receive Date: 20151020
  Receipt Date: 20151218
  Transmission Date: 20160304
  Serious: Yes (Hospitalization)
  Sender: FDA-Public Use
  Company Number: IT-ROCHE-1399765

PATIENT
  Age: 48 Year
  Sex: Male

DRUGS (59)
  1. ZANTAC [Concomitant]
     Active Substance: RANITIDINE HYDROCHLORIDE
     Dosage: DOSE:1 VIAL
     Route: 042
     Dates: start: 20140827, end: 20140828
  2. KYTRIL [Concomitant]
     Active Substance: GRANISETRON HYDROCHLORIDE
     Dosage: DOSE:1 VIAL
     Route: 042
     Dates: start: 20140925, end: 20140925
  3. PARACETAMOL [Concomitant]
     Active Substance: ACETAMINOPHEN
     Route: 048
     Dates: start: 20140521, end: 20140521
  4. ZANTAC [Concomitant]
     Active Substance: RANITIDINE HYDROCHLORIDE
     Dosage: DOSE:1 VIAL
     Route: 042
     Dates: start: 20140702, end: 20140703
  5. ZANTAC [Concomitant]
     Active Substance: RANITIDINE HYDROCHLORIDE
     Dosage: DOSE:1 VIAL
     Route: 042
     Dates: start: 20140430, end: 20140430
  6. ALLOPURINOL. [Concomitant]
     Active Substance: ALLOPURINOL
     Route: 048
     Dates: start: 20140430, end: 20140920
  7. KYTRIL [Concomitant]
     Active Substance: GRANISETRON HYDROCHLORIDE
     Dosage: DOSE:1 VIAL
     Route: 042
     Dates: start: 20140604, end: 20140604
  8. KYTRIL [Concomitant]
     Active Substance: GRANISETRON HYDROCHLORIDE
     Dosage: DOSE:1 VIAL
     Route: 042
     Dates: start: 20140703, end: 20140703
  9. KYTRIL [Concomitant]
     Active Substance: GRANISETRON HYDROCHLORIDE
     Dosage: DOSE:1 VIAL
     Route: 042
     Dates: start: 20140731, end: 20140731
  10. KYTRIL [Concomitant]
     Active Substance: GRANISETRON HYDROCHLORIDE
     Dosage: DOSE:1 VIAL
     Route: 042
     Dates: start: 20140926, end: 20140926
  11. TRIMETON (ITALY) [Concomitant]
     Route: 042
     Dates: start: 20140827, end: 20140827
  12. MYELOSTIM [Concomitant]
     Route: 065
     Dates: start: 20140427, end: 20140428
  13. MYELOSTIM [Concomitant]
     Route: 065
     Dates: start: 20140502, end: 20140504
  14. OBINUTUZUMAB [Suspect]
     Active Substance: OBINUTUZUMAB
     Indication: CHRONIC LYMPHOCYTIC LEUKAEMIA
     Dosage: DATE OF LAST DOSE PRIOR TO SAE: 30/APR/2014,?FREQUENCY AS PER PROTOCOL : DAYS 1/2 IN SPLITTED DOSE,
     Route: 042
     Dates: start: 20140423, end: 20140507
  15. ZANTAC [Concomitant]
     Active Substance: RANITIDINE HYDROCHLORIDE
     Dosage: DOSE:1 VIAL
     Route: 042
     Dates: start: 20140730, end: 20140731
  16. COTRIMOXAZOLE [Concomitant]
     Active Substance: SULFAMETHOXAZOLE\TRIMETHOPRIM
     Indication: PROPHYLAXIS
     Route: 048
     Dates: start: 20140422
  17. ALLOPURINOL. [Concomitant]
     Active Substance: ALLOPURINOL
     Route: 048
     Dates: start: 20140722, end: 20140729
  18. KYTRIL [Concomitant]
     Active Substance: GRANISETRON HYDROCHLORIDE
     Dosage: DOSE:1 VIAL
     Route: 042
     Dates: start: 20140702, end: 20140702
  19. KYTRIL [Concomitant]
     Active Substance: GRANISETRON HYDROCHLORIDE
     Dosage: DOSE:1 VIAL
     Route: 042
     Dates: start: 20140827, end: 20140827
  20. URBASON [Concomitant]
     Active Substance: METHYLPREDNISOLONE
     Route: 042
     Dates: start: 20140604, end: 20140604
  21. OMEPRAZOLE. [Concomitant]
     Active Substance: OMEPRAZOLE
     Indication: PROPHYLAXIS
     Route: 042
     Dates: start: 20140423, end: 20140425
  22. LANSOPRAZOLE. [Concomitant]
     Active Substance: LANSOPRAZOLE
     Indication: PROPHYLAXIS
     Route: 048
     Dates: start: 20140422
  23. ALLOPURINOL. [Concomitant]
     Active Substance: ALLOPURINOL
     Route: 048
     Dates: start: 20140928, end: 20141003
  24. KYTRIL [Concomitant]
     Active Substance: GRANISETRON HYDROCHLORIDE
     Indication: PROPHYLAXIS
     Dosage: DOSE:1 VIAL
     Route: 042
     Dates: start: 20140423, end: 20140424
  25. URBASON [Concomitant]
     Active Substance: METHYLPREDNISOLONE
     Route: 042
     Dates: start: 20140702, end: 20140702
  26. TRIMETON (ITALY) [Concomitant]
     Route: 042
     Dates: start: 20140702, end: 20140702
  27. TRIMETON (ITALY) [Concomitant]
     Route: 042
     Dates: start: 20140925, end: 20140925
  28. PARACETAMOL [Concomitant]
     Active Substance: ACETAMINOPHEN
     Route: 048
     Dates: start: 20140423, end: 20140424
  29. PARACETAMOL [Concomitant]
     Active Substance: ACETAMINOPHEN
     Route: 048
     Dates: start: 20140827, end: 20140827
  30. ALLOPURINOL. [Concomitant]
     Active Substance: ALLOPURINOL
     Route: 048
     Dates: start: 20140425, end: 20140508
  31. KYTRIL [Concomitant]
     Active Substance: GRANISETRON HYDROCHLORIDE
     Dosage: DOSE:1 VIAL
     Route: 042
     Dates: start: 20140828, end: 20140828
  32. URBASON [Concomitant]
     Active Substance: METHYLPREDNISOLONE
     Indication: PROPHYLAXIS
     Route: 042
     Dates: start: 20140423, end: 20140423
  33. URBASON [Concomitant]
     Active Substance: METHYLPREDNISOLONE
     Route: 042
     Dates: start: 20140827, end: 20140827
  34. TRIMETON (ITALY) [Concomitant]
     Route: 042
     Dates: start: 20140430, end: 20140430
  35. TRIMETON (ITALY) [Concomitant]
     Route: 042
     Dates: start: 20140604, end: 20140604
  36. BENDAMUSTINE [Suspect]
     Active Substance: BENDAMUSTINE
     Indication: CHRONIC LYMPHOCYTIC LEUKAEMIA
     Dosage: LAST DOSE PRIOR TO SAE ON 24/APR/2014
     Route: 042
     Dates: start: 20140423
  37. ZANTAC [Concomitant]
     Active Substance: RANITIDINE HYDROCHLORIDE
     Dosage: DOSE:1 VIAL
     Route: 042
     Dates: start: 20140423, end: 20140424
  38. URBASON [Concomitant]
     Active Substance: METHYLPREDNISOLONE
     Route: 042
     Dates: start: 20140730, end: 20140730
  39. PARACETAMOL [Concomitant]
     Active Substance: ACETAMINOPHEN
     Route: 048
     Dates: start: 20140430, end: 20140430
  40. PARACETAMOL [Concomitant]
     Active Substance: ACETAMINOPHEN
     Route: 048
     Dates: start: 20140604, end: 20140604
  41. ZANTAC [Concomitant]
     Active Substance: RANITIDINE HYDROCHLORIDE
     Dosage: DOSE:1 VIAL
     Route: 042
     Dates: start: 20140521, end: 20140521
  42. ZANTAC [Concomitant]
     Active Substance: RANITIDINE HYDROCHLORIDE
     Dosage: DOSE:1 VIAL
     Route: 042
     Dates: start: 20140925, end: 20140926
  43. KYTRIL [Concomitant]
     Active Substance: GRANISETRON HYDROCHLORIDE
     Dosage: DOSE:1 VIAL
     Route: 042
     Dates: start: 20140605, end: 20140605
  44. TRIMETON (ITALY) [Concomitant]
     Route: 042
     Dates: start: 20140423, end: 20140424
  45. PARACETAMOL [Concomitant]
     Active Substance: ACETAMINOPHEN
     Route: 048
     Dates: start: 20140702, end: 20140702
  46. PARACETAMOL [Concomitant]
     Active Substance: ACETAMINOPHEN
     Route: 048
     Dates: start: 20140730, end: 20140730
  47. ZANTAC [Concomitant]
     Active Substance: RANITIDINE HYDROCHLORIDE
     Dosage: DOSE:1 VIAL
     Route: 042
     Dates: start: 20140604, end: 20140604
  48. ALLOPURINOL. [Concomitant]
     Active Substance: ALLOPURINOL
     Indication: PROPHYLAXIS
     Route: 048
     Dates: start: 20140422, end: 20140422
  49. ALLOPURINOL. [Concomitant]
     Active Substance: ALLOPURINOL
     Route: 048
     Dates: start: 20140818, end: 20140825
  50. KYTRIL [Concomitant]
     Active Substance: GRANISETRON HYDROCHLORIDE
     Dosage: DOSE:1 VIAL
     Route: 042
     Dates: start: 20140521, end: 20140521
  51. KYTRIL [Concomitant]
     Active Substance: GRANISETRON HYDROCHLORIDE
     Dosage: DOSE:1 VIAL
     Route: 042
     Dates: start: 20140730, end: 20140730
  52. KYTRIL [Concomitant]
     Active Substance: GRANISETRON HYDROCHLORIDE
     Dosage: DOSE:1 VIAL
     Route: 042
     Dates: start: 20140430, end: 20140430
  53. URBASON [Concomitant]
     Active Substance: METHYLPREDNISOLONE
     Route: 042
     Dates: start: 20140424, end: 20140424
  54. URBASON [Concomitant]
     Active Substance: METHYLPREDNISOLONE
     Route: 042
     Dates: start: 20140430, end: 20140430
  55. URBASON [Concomitant]
     Active Substance: METHYLPREDNISOLONE
     Route: 042
     Dates: start: 20140521, end: 20140521
  56. URBASON [Concomitant]
     Active Substance: METHYLPREDNISOLONE
     Route: 042
     Dates: start: 20140925, end: 20140925
  57. TRIMETON (ITALY) [Concomitant]
     Route: 042
     Dates: start: 20140521, end: 20140521
  58. TRIMETON (ITALY) [Concomitant]
     Route: 042
     Dates: start: 20140730, end: 20140730
  59. PARACETAMOL [Concomitant]
     Active Substance: ACETAMINOPHEN
     Route: 048
     Dates: start: 20140925, end: 20140925

REACTIONS (1)
  - Febrile neutropenia [Recovered/Resolved]

NARRATIVE: CASE EVENT DATE: 20140506
